FAERS Safety Report 9849443 (Version 1)
Quarter: 2014Q1

REPORT INFORMATION
  Report Type: Spontaneous
  Country: US (occurrence: None)
  Receive Date: 20140124
  Receipt Date: 20140124
  Transmission Date: 20141002
  Serious: Yes (Other)
  Sender: FDA-Public Use
  Company Number: US-RRD-14-00002

PATIENT
  Age: 59 Year
  Sex: Female

DRUGS (7)
  1. DOXORUBICIN (DOXORUBICIN) (DOXORUBICIN) [Concomitant]
  2. VINCRISTINE (VINCRISTINE) (VINCRISTINE) [Concomitant]
  3. PREDNISONE (PREDNISONE) (PREDNISONE) [Concomitant]
  4. CYTOXAN (CYCLOPHOSPHAMIDE) (CYCLOPHOSHAMIDE) [Concomitant]
  5. AMLODIPINE (AMLODIPINE) (AMLODIPINE) [Concomitant]
  6. ZESTRIL (LISINOPRIL) (LISINOPRIL) [Concomitant]
  7. ASPARAGINASE [Suspect]
     Indication: B PRECURSOR TYPE ACUTE LEUKAEMIA

REACTIONS (4)
  - Hepatic steatosis [None]
  - Cholelithiasis [None]
  - Cholestasis [None]
  - Hepatic fibrosis [None]
